FAERS Safety Report 6382385-2 (Version None)
Quarter: 2009Q3

REPORT INFORMATION
  Report Type: 
  Country: None (occurrence: None)
  Receive Date: 20090930
  Receipt Date: 20090917
  Transmission Date: 20100115
  Serious: Yes (Hospitalization)
  Sender: FDA-Public Use
  Company Number: FR-PFIZER INC-2009261526

PATIENT
  Age: 47 Year

DRUGS (3)
  1. NEURONTIN [Suspect]
     Indication: PAIN
     Dosage: UNK
     Route: 048
     Dates: end: 20070101
  2. OXYNORM [Suspect]
     Indication: PAIN
     Dosage: UNK
     Route: 048
     Dates: start: 19980101
  3. OXYCONTIN [Suspect]
     Indication: PAIN
     Dosage: UNK
     Route: 048

REACTIONS (2)
  - HYPOVITAMINOSIS [None]
  - OSTEOPOROTIC FRACTURE [None]
